FAERS Safety Report 19864824 (Version 1)
Quarter: 2021Q3

REPORT INFORMATION
  Report Type: Spontaneous
  Country: US (occurrence: US)
  Receive Date: 20210921
  Receipt Date: 20210921
  Transmission Date: 20211014
  Serious: Yes (Other)
  Sender: FDA-Public Use
  Company Number: US-PFIZER INC-202101193413

PATIENT
  Age: 81 Year
  Sex: Female

DRUGS (1)
  1. IBRANCE [Suspect]
     Active Substance: PALBOCICLIB
     Indication: BREAST CANCER METASTATIC
     Dosage: UNK

REACTIONS (8)
  - Cerebrovascular accident [Unknown]
  - Blood magnesium decreased [Unknown]
  - Cataract [Unknown]
  - Noninfective sialoadenitis [Unknown]
  - Blood potassium decreased [Unknown]
  - Dyspnoea [Unknown]
  - Alopecia [Unknown]
  - Vitamin D decreased [Unknown]

NARRATIVE: CASE EVENT DATE: 2021
